FAERS Safety Report 5963667-2 (Version None)
Quarter: 2008Q4

REPORT INFORMATION
  Report Type: 
  Country: None (occurrence: None)
  Receive Date: 20081124
  Receipt Date: 20081118
  Transmission Date: 20090506
  Serious: Yes (Other)
  Sender: FDA-Public Use
  Company Number: US-ELI_LILLY_AND_COMPANY-US200811004591

PATIENT
  Sex: Female

DRUGS (10)
  1. BYETTA [Suspect]
     Indication: TYPE 2 DIABETES MELLITUS
     Dosage: 5 UG, 2/D
     Route: 058
     Dates: start: 20060101, end: 20060101
  2. BYETTA [Suspect]
     Dosage: 10 UG, 2/D
     Route: 058
     Dates: start: 20060101
  3. DIOVAN [Concomitant]
     Dosage: UNK, UNKNOWN
  4. METOPROLOL SUCCINATE [Concomitant]
     Dosage: UNK, UNKNOWN
  5. PLAVIX [Concomitant]
     Dosage: UNK, UNKNOWN
  6. AMLODIPINE [Concomitant]
     Dosage: UNK, EACH MORNING
  7. LIPITOR [Concomitant]
     Dosage: UNK, UNKNOWN
  8. GLIMEPIRIDE [Concomitant]
     Indication: TYPE 2 DIABETES MELLITUS
     Dosage: UNK, UNKNOWN
  9. TYLENOL /USA/ [Concomitant]
     Dosage: UNK, UNKNOWN
  10. OTHER HYPNOTICS AND SEDATIVES [Concomitant]
     Indication: SEDATIVE THERAPY
     Dosage: UNK, UNKNOWN

REACTIONS (3)
  - ARTHRITIS [None]
  - INJECTION SITE HAEMORRHAGE [None]
  - INJECTION SITE PAIN [None]
